FAERS Safety Report 5255349-X (Version None)
Quarter: 2007Q1

REPORT INFORMATION
  Report Type: 
  Country: None (occurrence: None)
  Receive Date: 20070228
  Receipt Date: 20070212
  Transmission Date: 20070707
  Serious: Yes (Life-Threatening, Hospitalization)
  Sender: FDA-Public Use
  Company Number: DSA_29414_2007

PATIENT
  Age: 63 Year
  Sex: Male

DRUGS (2)
  1. LORAZEPAM [Suspect]
     Dosage: DF ONCE PO
     Route: 048
     Dates: start: 20070212, end: 20070212
  2. TRIMIPRAMINE MALEATE [Suspect]
     Dosage: DF ONCE PO
     Route: 048
     Dates: start: 20070212, end: 20070212

REACTIONS (5)
  - BOWEL SOUNDS ABNORMAL [None]
  - MULTIPLE DRUG OVERDOSE [None]
  - SOPOR [None]
  - SUICIDE ATTEMPT [None]
  - TACHYCARDIA [None]
